FAERS Safety Report 7740836-2 (Version None)
Quarter: 2011Q3

REPORT INFORMATION
  Report Type: 
  Country: None (occurrence: None)
  Receive Date: 20110909
  Receipt Date: 20110907
  Transmission Date: 20111222
  Serious: Yes (Death, Other)
  Sender: FDA-Public Use
  Company Number: US-AMGEN-USASP2011008565

PATIENT
  Sex: Male

DRUGS (3)
  1. IMMUNOGLOBULINS [Concomitant]
  2. NPLATE [Suspect]
     Indication: IDIOPATHIC THROMBOCYTOPENIC PURPURA
     Dosage: UNK
     Dates: start: 20100909
  3. CORTICOSTEROIDS [Concomitant]

REACTIONS (2)
  - DISEASE PROGRESSION [None]
  - MALIGNANT MELANOMA [None]
